FAERS Safety Report 7796982-0 (Version None)
Quarter: 2011Q4

REPORT INFORMATION
  Report Type: 
  Country: None (occurrence: None)
  Receive Date: 20111005
  Receipt Date: 20111005
  Transmission Date: 20120403
  Serious: Yes (Hospitalization)
  Sender: FDA-Public Use
  Company Number: None

PATIENT
  Age: 58 Year
  Sex: Male
  Weight: 108.86 kg

DRUGS (2)
  1. SAPHRIS [Suspect]
     Indication: SCHIZOPHRENIA
     Dates: start: 20110101, end: 20111003
  2. SAPHRIS [Suspect]
     Indication: HALLUCINATION
     Dates: start: 20110101, end: 20111003

REACTIONS (6)
  - PYREXIA [None]
  - LOBAR PNEUMONIA [None]
  - DYSPNOEA [None]
  - HAEMOPTYSIS [None]
  - PULMONARY HAEMORRHAGE [None]
  - CHILLS [None]
